FAERS Safety Report 6394468-1 (Version None)
Quarter: 2009Q4

REPORT INFORMATION
  Report Type: 
  Country: None (occurrence: None)
  Receive Date: 20091009
  Receipt Date: 20090929
  Transmission Date: 20100525
  Serious: Yes (Life-Threatening, Other)
  Sender: FDA-Public Use
  Company Number: AR-RANBAXY-2009RR-28314

PATIENT
  Age: 35 Year
  Sex: Female

DRUGS (3)
  1. RANITIDINE [Suspect]
     Dosage: 100 MG, UNK
  2. METOCLOPRAMIDE [Concomitant]
  3. DIPYRONE [Concomitant]

REACTIONS (2)
  - CARDIAC ARREST [None]
  - VENTRICULAR ARRHYTHMIA [None]
